FAERS Safety Report 10257582 (Version 1)
Quarter: 2014Q2

REPORT INFORMATION
  Report Type: Spontaneous
  Country: US (occurrence: None)
  Receive Date: 20140623
  Receipt Date: 20140623
  Transmission Date: 20141212
  Serious: Yes (Hospitalization)
  Sender: FDA-Public Use
  Company Number: None

PATIENT
  Age: 11 Year
  Sex: Male
  Weight: 58.1 kg

DRUGS (1)
  1. PEG-L ASPARAGINASE [Suspect]
     Dosage: AFTER ALLERGIC REACTION PEG WAS SUBSTITUTED FOR ERWINIA.
     Dates: end: 20140616

REACTIONS (8)
  - Abdominal pain [None]
  - Lip swelling [None]
  - Eye swelling [None]
  - Swollen tongue [None]
  - Pharyngeal oedema [None]
  - Cough [None]
  - Dysphagia [None]
  - Hypersensitivity [None]
